FAERS Safety Report 13492746 (Version 7)
Quarter: 2018Q3

REPORT INFORMATION
  Report Type: Report from Study
  Country: None (occurrence: NL)
  Receive Date: 20170427
  Receipt Date: 20180914
  Transmission Date: 20181010
  Serious: Yes (Other)
  Sender: FDA-Public Use
  Company Number: NL-ABBVIE-16P-114-1700929-00

PATIENT
  Sex: Male
  Weight: 83 kg

DRUGS (3)
  1. LEVODOPA/CARBIDOPA [Concomitant]
     Active Substance: CARBIDOPA\LEVODOPA
     Indication: PRODUCT USED FOR UNKNOWN INDICATION
     Dosage: 200/50 MG
  2. DUODOPA [Suspect]
     Active Substance: CARBIDOPA\LEVODOPA
     Indication: PARKINSON^S DISEASE
     Dosage: MD: 8, CD: 1.9, ED: 2
     Route: 050
     Dates: start: 20160229
  3. METFORMIN [Concomitant]
     Active Substance: METFORMIN HYDROCHLORIDE
     Indication: TYPE 2 DIABETES MELLITUS

REACTIONS (22)
  - Muscle rigidity [Not Recovered/Not Resolved]
  - Abnormal dreams [Recovering/Resolving]
  - Weight increased [Not Recovered/Not Resolved]
  - Therapeutic response unexpected [Unknown]
  - On and off phenomenon [Not Recovered/Not Resolved]
  - Stoma site irritation [Recovered/Resolved]
  - Increased appetite [Not Recovered/Not Resolved]
  - On and off phenomenon [Unknown]
  - Memory impairment [Not Recovered/Not Resolved]
  - Fatigue [Unknown]
  - Headache [Recovered/Resolved]
  - Phlebitis superficial [Not Recovered/Not Resolved]
  - Weight decreased [Not Recovered/Not Resolved]
  - Stoma site erythema [Recovered/Resolved]
  - Depression [Not Recovered/Not Resolved]
  - Sleep apnoea syndrome [Recovering/Resolving]
  - Restlessness [Recovering/Resolving]
  - Bradykinesia [Not Recovered/Not Resolved]
  - Pre-existing condition improved [Unknown]
  - General physical health deterioration [Not Recovered/Not Resolved]
  - Stoma site discharge [Recovered/Resolved]
  - Stoma site discharge [Recovered/Resolved]

NARRATIVE: CASE EVENT DATE: 2016
